FAERS Safety Report 16052786 (Version 2)
Quarter: 2019Q1

REPORT INFORMATION
  Report Type: Spontaneous
  Country: SE (occurrence: SE)
  Receive Date: 20190308
  Receipt Date: 20190325
  Transmission Date: 20190418
  Serious: Yes (Other)
  Sender: FDA-Public Use
  Company Number: SE-BAYER-2019-045780

PATIENT
  Sex: Female

DRUGS (4)
  1. XOFIGO [Suspect]
     Active Substance: RADIUM RA-223 DICHLORIDE
     Indication: BREAST CANCER
     Dosage: 55 KBQ PER KG BODY WEIGHT
  2. XOFIGO [Suspect]
     Active Substance: RADIUM RA-223 DICHLORIDE
     Indication: BREAST CANCER
     Dosage: 55 KBQ PER KG BODY WEIGHT
  3. XOFIGO [Suspect]
     Active Substance: RADIUM RA-223 DICHLORIDE
     Indication: BREAST CANCER
     Dosage: 55 KBQ PER KG BODY WEIGHT
     Dates: end: 2017
  4. XOFIGO [Suspect]
     Active Substance: RADIUM RA-223 DICHLORIDE
     Indication: BREAST CANCER
     Dosage: 55 KBQ PER KG BODY WEIGHT

REACTIONS (5)
  - Metastasis [None]
  - Metastases to liver [None]
  - Off label use [None]
  - Product use in unapproved indication [None]
  - Drug ineffective for unapproved indication [None]
